FAERS Safety Report 4615269-8 (Version None)
Quarter: 2005Q1

REPORT INFORMATION
  Report Type: 
  Country: None (occurrence: None)
  Receive Date: 20050322
  Receipt Date: 20050314
  Transmission Date: 20050727
  Serious: Yes (Disabling)
  Sender: FDA-Public Use
  Company Number: PHRM2005FR01038

PATIENT
  Age: 67 Year
  Sex: Male

DRUGS (2)
  1. ESIDRIX [Suspect]
     Dosage: 25 MG, QD
     Route: 048
     Dates: end: 20040912
  2. IMODIUM [Suspect]
     Indication: DIARRHOEA INFECTIOUS
     Dosage: 2 MG, BID
     Route: 048
     Dates: start: 20040904, end: 20040906

REACTIONS (3)
  - ANGLE CLOSURE GLAUCOMA [None]
  - DIARRHOEA INFECTIOUS [None]
  - TRABECULECTOMY [None]
